FAERS Safety Report 12547437 (Version 1)
Quarter: 2016Q3

REPORT INFORMATION
  Report Type: Spontaneous
  Country: US (occurrence: US)
  Receive Date: 20160711
  Receipt Date: 20160711
  Transmission Date: 20161109
  Serious: No
  Sender: FDA-Public Use
  Company Number: GXBR2016US002120

PATIENT
  Sex: Female
  Weight: 66.67 kg

DRUGS (4)
  1. ZARXIO [Suspect]
     Active Substance: FILGRASTIM-SNDZ
     Indication: PRODUCT USED FOR UNKNOWN INDICATION
     Dosage: 300 UG, QD
     Route: 041
     Dates: start: 20160504, end: 20160505
  2. CISPLATIN. [Concomitant]
     Active Substance: CISPLATIN
     Indication: LUNG NEOPLASM MALIGNANT
     Dosage: 34 MG, UNK
     Dates: start: 20160503
  3. ABRAXANE [Concomitant]
     Active Substance: PACLITAXEL
     Dosage: 138 UNK, UNK
     Dates: start: 20160510
  4. ABRAXANE [Concomitant]
     Active Substance: PACLITAXEL
     Indication: LUNG NEOPLASM MALIGNANT
     Dosage: 138 MG, UNK
     Dates: start: 20160503

REACTIONS (2)
  - Injection site pain [Recovered/Resolved]
  - Bone pain [Recovered/Resolved]
